FAERS Safety Report 24539291 (Version 1)
Quarter: 2024Q4

REPORT INFORMATION
  Report Type: Other
  Country: GB (occurrence: GB)
  Receive Date: 20241023
  Receipt Date: 20241023
  Transmission Date: 20250115
  Serious: Yes (Other)
  Sender: MACLEODS
  Company Number: GB-MHRA-EMIS-6638-5adcc630-130d-49bb-8525-418db17c36f7

PATIENT

DRUGS (4)
  1. DONEPEZIL [Suspect]
     Active Substance: DONEPEZIL
     Indication: Adverse drug reaction
     Dosage: ONE TO BE TAKEN AT NIGHT
     Route: 065
     Dates: start: 20240924
  2. BISOPROLOL [Concomitant]
     Active Substance: BISOPROLOL\BISOPROLOL FUMARATE
     Indication: Product used for unknown indication
     Dosage: 2.5 MG
     Route: 065
  3. DONEPEZIL [Concomitant]
     Active Substance: DONEPEZIL
     Indication: Adverse drug reaction
     Dosage: ONE TO BE TAKEN AT NIGHT FOR FIRST MONTH THEN UP TO 10MG AT NIGHT IF TOLERATED
     Route: 065
  4. DONEPEZIL [Concomitant]
     Active Substance: DONEPEZIL
     Indication: Adverse drug reaction
     Dosage: ONE TO BE TAKEN AT NIGHT
     Route: 065
     Dates: start: 20240820

REACTIONS (2)
  - Bradycardia [Recovered/Resolved]
  - Syncope [Unknown]

NARRATIVE: CASE EVENT DATE: 20241001
